FAERS Safety Report 4389637-6 (Version None)
Quarter: 2004Q2

REPORT INFORMATION
  Report Type: 
  Country: None (occurrence: None)
  Receive Date: 20040629
  Receipt Date: 20030523
  Transmission Date: 20050107
  Serious: Yes (Hospitalization)
  Sender: FDA-Public Use
  Company Number: NSADSS2002000889

PATIENT
  Age: 69 Year
  Sex: Female

DRUGS (8)
  1. DURAGESIC [Suspect]
     Indication: PAIN
     Dosage: SEE IMAGE TRANSDERMAL
     Route: 062
     Dates: start: 20011001, end: 20011001
  2. DURAGESIC [Suspect]
     Indication: PAIN
     Dosage: SEE IMAGE TRANSDERMAL
     Route: 062
     Dates: start: 20011101, end: 20011101
  3. DURAGESIC [Suspect]
     Indication: PAIN
     Dosage: SEE IMAGE TRANSDERMAL
     Route: 062
     Dates: start: 20011101, end: 20011228
  4. PROPRANOLOL [Concomitant]
  5. NAPROREX (NAPROXEN SODIUM) [Concomitant]
  6. PAXIL [Concomitant]
  7. AMBIEN [Concomitant]
  8. HYDROCODONE BITARTRATE [Concomitant]

REACTIONS (2)
  - DELUSION [None]
  - DYSPNOEA [None]
